FAERS Safety Report 8947018 (Version 2)
Quarter: 2013Q1

REPORT INFORMATION
  Report Type: Spontaneous
  Country: US (occurrence: US)
  Receive Date: 20121205
  Receipt Date: 20130124
  Transmission Date: 20140127
  Serious: No
  Sender: FDA-Public Use
  Company Number: US-PFIZER INC-2012305094

PATIENT
  Sex: Female

DRUGS (1)
  1. ADVIL PM [Suspect]
     Dosage: UNK

REACTIONS (2)
  - Drug ineffective [Unknown]
  - Abdominal discomfort [Unknown]
